FAERS Safety Report 16413829 (Version 2)
Quarter: 2019Q2

REPORT INFORMATION
  Report Type: Spontaneous
  Country: IT (occurrence: IT)
  Receive Date: 20190611
  Receipt Date: 20190615
  Transmission Date: 20190711
  Serious: Yes (Life-Threatening, Other)
  Sender: FDA-Public Use
  Company Number: IT-AUROBINDO-AUR-APL-2019-032870

PATIENT

DRUGS (104)
  1. ONDANSETRON SOLUTION FOR INJECTION OR INFUSION [Suspect]
     Active Substance: ONDANSETRON
     Indication: DIFFUSE LARGE B-CELL LYMPHOMA
     Dosage: 8 MG, WITH ETOPOSIDE AND IFOSFAMIDE
     Route: 065
     Dates: start: 20180927
  2. ONDANSETRON SOLUTION FOR INJECTION OR INFUSION [Suspect]
     Active Substance: ONDANSETRON
     Dosage: 8 MG, WITH IEV THERAPY
     Route: 065
     Dates: start: 20181026
  3. ONDANSETRON SOLUTION FOR INJECTION OR INFUSION [Suspect]
     Active Substance: ONDANSETRON
     Dosage: 8 MG,INFUSION
     Route: 065
     Dates: start: 20180512
  4. ONDANSETRON SOLUTION FOR INJECTION OR INFUSION [Suspect]
     Active Substance: ONDANSETRON
     Dosage: 8 MG, WITH ETOPOSIDE AND IFOSFAMIDE
     Route: 065
     Dates: start: 20180928
  5. DOXORUBICIN [Suspect]
     Active Substance: DOXORUBICIN
     Dosage: 89 MG
     Route: 040
     Dates: start: 20180622
  6. DOXORUBICIN [Suspect]
     Active Substance: DOXORUBICIN
     Dosage: 89 MG
     Route: 040
     Dates: start: 20180713
  7. TRUXIMA [Suspect]
     Active Substance: RITUXIMAB-ABBS
     Indication: DIFFUSE LARGE B-CELL LYMPHOMA
     Dosage: AS MAINTENANCE
     Route: 042
     Dates: start: 20180803
  8. TRUXIMA [Suspect]
     Active Substance: RITUXIMAB-ABBS
     Dosage: UNK + CHOP
     Route: 042
     Dates: start: 20180712
  9. TRUXIMA [Suspect]
     Active Substance: RITUXIMAB-ABBS
     Dosage: UNK + CHOP
     Route: 042
     Dates: start: 20180621
  10. VINCRISTINE [Suspect]
     Active Substance: VINCRISTINE
     Indication: DIFFUSE LARGE B-CELL LYMPHOMA
     Dosage: 2 MG
     Route: 040
     Dates: start: 20180601
  11. ETOPOSIDE. [Suspect]
     Active Substance: ETOPOSIDE
     Indication: DIFFUSE LARGE B-CELL LYMPHOMA
     Dosage: 267 MG, INFUSION
     Route: 065
     Dates: start: 20180926
  12. SODIUM CHLORIDE 0.9% [Concomitant]
     Active Substance: SODIUM CHLORIDE
     Dosage: INFUSION
     Route: 065
     Dates: start: 20180928
  13. MESNA. [Concomitant]
     Active Substance: MESNA
     Indication: PRODUCT USED FOR UNKNOWN INDICATION
     Dosage: 4.450 MG, INFUSION
     Route: 065
     Dates: start: 20180926
  14. DEXAMETHASONE. [Concomitant]
     Active Substance: DEXAMETHASONE
     Dosage: 14.24 MG, INFUSION
     Route: 065
     Dates: start: 20181024
  15. DEXAMETHASONE. [Concomitant]
     Active Substance: DEXAMETHASONE
     Dosage: 14.24 MG, INFUSION
     Route: 065
     Dates: start: 20181025
  16. PALONOSETRON. [Concomitant]
     Active Substance: PALONOSETRON HYDROCHLORIDE
     Indication: PRODUCT USED FOR UNKNOWN INDICATION
     Dosage: 250 MICROGRAM
     Route: 030
     Dates: start: 20180926
  17. DOXORUBICIN [Suspect]
     Active Substance: DOXORUBICIN
     Dosage: 89 MG
     Route: 040
     Dates: start: 20180329
  18. CYCLOPHOSPHAMIDE. [Suspect]
     Active Substance: CYCLOPHOSPHAMIDE
     Dosage: 1.335 MG
     Route: 065
     Dates: start: 20180601
  19. CYCLOPHOSPHAMIDE. [Suspect]
     Active Substance: CYCLOPHOSPHAMIDE
     Dosage: 1.335 MG
     Route: 065
     Dates: start: 20180713
  20. TRUXIMA [Suspect]
     Active Substance: RITUXIMAB-ABBS
     Dosage: UNK
  21. TRUXIMA [Suspect]
     Active Substance: RITUXIMAB-ABBS
     Dosage: AS MAINTENANCE
     Route: 042
     Dates: start: 20180823
  22. TRUXIMA [Suspect]
     Active Substance: RITUXIMAB-ABBS
     Dosage: UNK + CHOP
     Route: 042
     Dates: start: 20180328
  23. VINCRISTINE [Suspect]
     Active Substance: VINCRISTINE
     Dosage: 2 MG
     Route: 040
     Dates: start: 20180622
  24. VINCRISTINE [Suspect]
     Active Substance: VINCRISTINE
     Dosage: 2 MG
     Route: 040
     Dates: start: 20180512
  25. IFOSFAMIDE. [Suspect]
     Active Substance: IFOSFAMIDE
     Dosage: 4.400 MG, INFUSION
     Route: 065
     Dates: start: 20180927
  26. IFOSFAMIDE. [Suspect]
     Active Substance: IFOSFAMIDE
     Dosage: 4.400 MG, INFUSION
     Route: 065
     Dates: start: 20180928
  27. IFOSFAMIDE. [Suspect]
     Active Substance: IFOSFAMIDE
     Dosage: 4.400 MG, INFUSION
     Route: 065
     Dates: start: 20181026
  28. CHLORPHENAMINE [Suspect]
     Active Substance: CHLORPHENIRAMINE MALEATE
     Dosage: 10 MG
     Route: 065
     Dates: start: 20180601
  29. CHLORPHENAMINE [Suspect]
     Active Substance: CHLORPHENIRAMINE MALEATE
     Dosage: 10 MG
     Route: 065
     Dates: start: 20180622
  30. METHYLPREDNISOLONE. [Suspect]
     Active Substance: METHYLPREDNISOLONE
     Dosage: 125 MG
     Route: 040
     Dates: start: 20180622
  31. ETOPOSIDE. [Suspect]
     Active Substance: ETOPOSIDE
     Dosage: 267 MG, INFUSION
     Route: 065
     Dates: start: 20181025
  32. POTASSIUM CHLORIDE. [Concomitant]
     Active Substance: POTASSIUM CHLORIDE
     Dosage: 40 MEQ, INFUSION
     Route: 065
     Dates: start: 20180927
  33. SODIUM CHLORIDE 0.9% [Concomitant]
     Active Substance: SODIUM CHLORIDE
     Dosage: INFUSION
     Route: 065
     Dates: start: 20180927
  34. SODIUM CHLORIDE 0.9% [Concomitant]
     Active Substance: SODIUM CHLORIDE
     Dosage: INFUSION
     Route: 065
     Dates: start: 20181026
  35. GLUCOSE [Concomitant]
     Active Substance: DEXTROSE
     Indication: PRODUCT USED FOR UNKNOWN INDICATION
     Dosage: 500 ML, INFUSION
     Route: 065
     Dates: start: 20180926
  36. GLUCOSE [Concomitant]
     Active Substance: DEXTROSE
     Dosage: 500 ML, INFUSION
     Route: 065
     Dates: start: 20180927
  37. GLUCOSE [Concomitant]
     Active Substance: DEXTROSE
     Dosage: 500 ML, INFUSION
     Route: 065
     Dates: start: 20181026
  38. GLUCOSE [Concomitant]
     Active Substance: DEXTROSE
     Dosage: 500 ML, INFUSION
     Route: 065
     Dates: start: 20181025
  39. MESNA. [Concomitant]
     Active Substance: MESNA
     Dosage: 4.450 MG, INFUSION
     Route: 065
     Dates: start: 20181026
  40. ONDANSETRON SOLUTION FOR INJECTION OR INFUSION [Suspect]
     Active Substance: ONDANSETRON
     Dosage: 8 MG,INFUSION
     Route: 065
     Dates: start: 20180622
  41. DOXORUBICIN [Suspect]
     Active Substance: DOXORUBICIN
     Indication: DIFFUSE LARGE B-CELL LYMPHOMA
     Dosage: 89 MG
     Route: 040
     Dates: start: 20180512
  42. TRUXIMA [Suspect]
     Active Substance: RITUXIMAB-ABBS
     Dosage: UNK + CHOP
     Route: 042
     Dates: start: 20180418
  43. TRUXIMA [Suspect]
     Active Substance: RITUXIMAB-ABBS
     Dosage: 667.5 MILLIGRAM
     Route: 042
     Dates: start: 20180323
  44. METHYLPREDNISOLONE. [Suspect]
     Active Substance: METHYLPREDNISOLONE
     Dosage: 125 MG
     Route: 040
     Dates: start: 20180329
  45. POTASSIUM CHLORIDE. [Concomitant]
     Active Substance: POTASSIUM CHLORIDE
     Dosage: 40 MEQ, INFUSION
     Route: 065
     Dates: start: 20180926
  46. RINGERS SOLUTION [Concomitant]
     Active Substance: CALCIUM CHLORIDE\POTASSIUM CHLORIDE\SODIUM CHLORIDE
     Dosage: INFUSION
     Route: 065
     Dates: start: 20180926
  47. ONDANSETRON SOLUTION FOR INJECTION OR INFUSION [Suspect]
     Active Substance: ONDANSETRON
     Dosage: 8 MG,INFUSION
     Route: 065
     Dates: start: 20180419
  48. TRUXIMA [Suspect]
     Active Substance: RITUXIMAB-ABBS
     Dosage: UNK + CHOP
     Route: 042
     Dates: start: 20180531
  49. TRUXIMA [Suspect]
     Active Substance: RITUXIMAB-ABBS
     Dosage: 667.5 MILLIGRAM
     Route: 042
     Dates: start: 20181023
  50. VINCRISTINE [Suspect]
     Active Substance: VINCRISTINE
     Dosage: 2 MG
     Route: 040
     Dates: start: 20180713
  51. IFOSFAMIDE. [Suspect]
     Active Substance: IFOSFAMIDE
     Dosage: 4.400 MG, INFUSION
     Route: 065
     Dates: start: 20180926
  52. ETOPOSIDE. [Suspect]
     Active Substance: ETOPOSIDE
     Dosage: 267 MG, INFUSION
     Route: 065
     Dates: start: 20181026
  53. ETOPOSIDE. [Suspect]
     Active Substance: ETOPOSIDE
     Dosage: 267 MG, INFUSION
     Route: 065
     Dates: start: 20181024
  54. POTASSIUM CHLORIDE. [Concomitant]
     Active Substance: POTASSIUM CHLORIDE
     Dosage: 40 MEQ, INFUSION
     Route: 065
     Dates: start: 20181026
  55. RINGERS SOLUTION [Concomitant]
     Active Substance: CALCIUM CHLORIDE\POTASSIUM CHLORIDE\SODIUM CHLORIDE
     Dosage: INFUSION
     Route: 065
     Dates: start: 20181024
  56. DEXAMETHASONE. [Concomitant]
     Active Substance: DEXAMETHASONE
     Indication: PRODUCT USED FOR UNKNOWN INDICATION
     Dosage: 14.24 MG, INFUSION
     Route: 065
     Dates: start: 20180926
  57. DEXAMETHASONE. [Concomitant]
     Active Substance: DEXAMETHASONE
     Dosage: 14.24 MG, INFUSION
     Route: 065
     Dates: start: 20180927
  58. DEXAMETHASONE. [Concomitant]
     Active Substance: DEXAMETHASONE
     Dosage: 14.24 MG, INFUSION
     Route: 065
     Dates: start: 20180928
  59. ONDANSETRON SOLUTION FOR INJECTION OR INFUSION [Suspect]
     Active Substance: ONDANSETRON
     Dosage: 8 MG, WITH IEV THERAPY
     Route: 065
     Dates: start: 20181025
  60. CYCLOPHOSPHAMIDE. [Suspect]
     Active Substance: CYCLOPHOSPHAMIDE
     Indication: DIFFUSE LARGE B-CELL LYMPHOMA
     Dosage: 1.335 MG
     Route: 065
     Dates: start: 20180329
  61. CYCLOPHOSPHAMIDE. [Suspect]
     Active Substance: CYCLOPHOSPHAMIDE
     Dosage: 1.335 MG
     Route: 065
     Dates: start: 20180512
  62. TRUXIMA [Suspect]
     Active Substance: RITUXIMAB-ABBS
     Dosage: 667.5 MILLIGRAM
     Route: 042
     Dates: start: 20180925
  63. IFOSFAMIDE. [Suspect]
     Active Substance: IFOSFAMIDE
     Indication: DIFFUSE LARGE B-CELL LYMPHOMA
     Dosage: 4.400 MG, INFUSION
     Route: 065
     Dates: start: 20181024
  64. CHLORPHENAMINE [Suspect]
     Active Substance: CHLORPHENIRAMINE MALEATE
     Dosage: 10 MG
     Route: 065
     Dates: start: 20180329
  65. METHYLPREDNISOLONE. [Suspect]
     Active Substance: METHYLPREDNISOLONE
     Dosage: 125 MG
     Route: 040
     Dates: start: 20180419
  66. POTASSIUM CHLORIDE. [Concomitant]
     Active Substance: POTASSIUM CHLORIDE
     Dosage: 40 MEQ, INFUSION
     Route: 065
     Dates: start: 20180928
  67. SODIUM CHLORIDE 0.9% [Concomitant]
     Active Substance: SODIUM CHLORIDE
     Indication: PRODUCT USED FOR UNKNOWN INDICATION
     Dosage: INFUSION
     Route: 065
     Dates: start: 20181024
  68. SODIUM CHLORIDE 0.9% [Concomitant]
     Active Substance: SODIUM CHLORIDE
     Dosage: INFUSION
     Route: 065
     Dates: start: 20181025
  69. RINGERS SOLUTION [Concomitant]
     Active Substance: CALCIUM CHLORIDE\POTASSIUM CHLORIDE\SODIUM CHLORIDE
     Indication: PRODUCT USED FOR UNKNOWN INDICATION
     Dosage: INFUSION
     Route: 065
     Dates: start: 20180927
  70. RINGERS SOLUTION [Concomitant]
     Active Substance: CALCIUM CHLORIDE\POTASSIUM CHLORIDE\SODIUM CHLORIDE
     Dosage: INFUSION
     Route: 065
     Dates: start: 20181025
  71. MESNA. [Concomitant]
     Active Substance: MESNA
     Dosage: 4.450 MG, INFUSION
     Route: 065
     Dates: start: 20180928
  72. MESNA. [Concomitant]
     Active Substance: MESNA
     Dosage: 4.450 MG, INFUSION
     Route: 065
     Dates: start: 20181025
  73. ONDANSETRON SOLUTION FOR INJECTION OR INFUSION [Suspect]
     Active Substance: ONDANSETRON
     Dosage: 8 MG,INFUSION
     Route: 065
     Dates: start: 20180601
  74. DOXORUBICIN [Suspect]
     Active Substance: DOXORUBICIN
     Dosage: 89 MG
     Route: 040
     Dates: start: 20180601
  75. CHLORPHENAMINE [Suspect]
     Active Substance: CHLORPHENIRAMINE MALEATE
     Indication: DIFFUSE LARGE B-CELL LYMPHOMA
     Dosage: 10 MG
     Route: 065
     Dates: start: 20180419
  76. CHLORPHENAMINE [Suspect]
     Active Substance: CHLORPHENIRAMINE MALEATE
     Dosage: 10 MG
     Route: 065
     Dates: start: 20180512
  77. METHYLPREDNISOLONE. [Suspect]
     Active Substance: METHYLPREDNISOLONE
     Dosage: 125 MG
     Route: 040
     Dates: start: 20180601
  78. METHYLPREDNISOLONE. [Suspect]
     Active Substance: METHYLPREDNISOLONE
     Dosage: 125 MG
     Route: 040
     Dates: start: 20180713
  79. POTASSIUM CHLORIDE. [Concomitant]
     Active Substance: POTASSIUM CHLORIDE
     Dosage: 40 MEQ, INFUSION
     Route: 065
     Dates: start: 20181024
  80. SODIUM CHLORIDE 0.9% [Concomitant]
     Active Substance: SODIUM CHLORIDE
     Dosage: INFUSION
     Route: 065
     Dates: start: 20180926
  81. GLUCOSE [Concomitant]
     Active Substance: DEXTROSE
     Dosage: 500 ML, INFUSION
     Route: 065
     Dates: start: 20180928
  82. DEXAMETHASONE. [Concomitant]
     Active Substance: DEXAMETHASONE
     Dosage: 14.24 MG, INFUSION
     Route: 065
     Dates: start: 20181026
  83. PALONOSETRON. [Concomitant]
     Active Substance: PALONOSETRON HYDROCHLORIDE
     Dosage: 250 MICROGRAM
     Route: 030
     Dates: start: 20181024
  84. ONDANSETRON SOLUTION FOR INJECTION OR INFUSION [Suspect]
     Active Substance: ONDANSETRON
     Dosage: 8 MG,INFUSION
     Route: 065
     Dates: start: 20180713
  85. DOXORUBICIN [Suspect]
     Active Substance: DOXORUBICIN
     Dosage: 89 MG
     Route: 040
     Dates: start: 20180419
  86. CYCLOPHOSPHAMIDE. [Suspect]
     Active Substance: CYCLOPHOSPHAMIDE
     Dosage: 1.335 MG
     Route: 065
     Dates: start: 20180419
  87. CYCLOPHOSPHAMIDE. [Suspect]
     Active Substance: CYCLOPHOSPHAMIDE
     Dosage: 1.335 MG
     Route: 065
     Dates: start: 20180622
  88. TRUXIMA [Suspect]
     Active Substance: RITUXIMAB-ABBS
     Dosage: UNK + CHOP
     Route: 042
     Dates: start: 20180511
  89. VINCRISTINE [Suspect]
     Active Substance: VINCRISTINE
     Dosage: 2 MG
     Route: 040
     Dates: start: 20180419
  90. ETOPOSIDE. [Suspect]
     Active Substance: ETOPOSIDE
     Dosage: 267 MG, INFUSION
     Route: 065
     Dates: start: 20180928
  91. GLUCOSE [Concomitant]
     Active Substance: DEXTROSE
     Dosage: 500 ML, INFUSION
     Route: 065
     Dates: start: 20181024
  92. RINGERS SOLUTION [Concomitant]
     Active Substance: CALCIUM CHLORIDE\POTASSIUM CHLORIDE\SODIUM CHLORIDE
     Dosage: INFUSION
     Route: 065
     Dates: start: 20180928
  93. MESNA. [Concomitant]
     Active Substance: MESNA
     Dosage: 4.450 MG, INFUSION
     Route: 065
     Dates: start: 20180927
  94. MESNA. [Concomitant]
     Active Substance: MESNA
     Dosage: 4.450 MG, INFUSION
     Route: 065
     Dates: start: 20181024
  95. ONDANSETRON SOLUTION FOR INJECTION OR INFUSION [Suspect]
     Active Substance: ONDANSETRON
     Dosage: 8 MG,INFUSION
     Route: 065
     Dates: start: 20180329
  96. VINCRISTINE [Suspect]
     Active Substance: VINCRISTINE
     Dosage: 2 MG
     Route: 040
     Dates: start: 20180329
  97. IFOSFAMIDE. [Suspect]
     Active Substance: IFOSFAMIDE
     Dosage: 4.400 MG, INFUSION
     Route: 065
     Dates: start: 20181025
  98. EPIRUBICINE [Suspect]
     Active Substance: EPIRUBICIN
     Indication: DIFFUSE LARGE B-CELL LYMPHOMA
     Dosage: 178 MG
     Route: 030
     Dates: start: 20180926
  99. EPIRUBICINE [Suspect]
     Active Substance: EPIRUBICIN
     Dosage: 178 MG
     Route: 030
     Dates: start: 20181024
  100. CHLORPHENAMINE [Suspect]
     Active Substance: CHLORPHENIRAMINE MALEATE
     Dosage: 10 MG
     Route: 065
     Dates: start: 20180713
  101. METHYLPREDNISOLONE. [Suspect]
     Active Substance: METHYLPREDNISOLONE
     Indication: DIFFUSE LARGE B-CELL LYMPHOMA
     Dosage: 125 MG
     Route: 065
     Dates: start: 20180512
  102. ETOPOSIDE. [Suspect]
     Active Substance: ETOPOSIDE
     Dosage: 267 MG, INFUSION
     Route: 065
     Dates: start: 20180927
  103. POTASSIUM CHLORIDE. [Concomitant]
     Active Substance: POTASSIUM CHLORIDE
     Indication: PRODUCT USED FOR UNKNOWN INDICATION
     Dosage: 40 MEQ, INFUSION
     Route: 065
     Dates: start: 20181025
  104. RINGERS SOLUTION [Concomitant]
     Active Substance: CALCIUM CHLORIDE\POTASSIUM CHLORIDE\SODIUM CHLORIDE
     Dosage: INFUSION
     Route: 065
     Dates: start: 20181026

REACTIONS (3)
  - Asthenia [Recovered/Resolved]
  - Nausea [Recovered/Resolved]
  - Neutropenia [Recovered/Resolved]

NARRATIVE: CASE EVENT DATE: 20180622
